FAERS Safety Report 8041012-9 (Version None)
Quarter: 2012Q1

REPORT INFORMATION
  Report Type: 
  Country: None (occurrence: None)
  Receive Date: 20120112
  Receipt Date: 20091211
  Transmission Date: 20120608
  Serious: No
  Sender: FDA-Public Use
  Company Number: 2009BI041938

PATIENT
  Sex: Female

DRUGS (9)
  1. WELLBUTRIN [Concomitant]
     Indication: DEPRESSION
  2. AVONEX [Concomitant]
     Indication: MULTIPLE SCLEROSIS
     Route: 030
     Dates: start: 19980201, end: 20070529
  3. ZYRTEC [Concomitant]
     Indication: SEASONAL ALLERGY
  4. KLONOPIN [Concomitant]
     Indication: ANXIETY
  5. KLONOPIN [Concomitant]
     Indication: MUSCLE SPASMS
  6. TYSABRI [Suspect]
     Indication: MULTIPLE SCLEROSIS
     Route: 042
     Dates: start: 20041101, end: 20050224
  7. BACLOFEN [Concomitant]
     Indication: MUSCLE SPASMS
  8. WELLBUTRIN [Concomitant]
     Indication: FATIGUE
  9. TYSABRI [Suspect]
     Route: 042
     Dates: start: 20071024, end: 20080714

REACTIONS (8)
  - DEPRESSED MOOD [None]
  - DRUG INEFFECTIVE [None]
  - MULTIPLE SCLEROSIS [None]
  - NUCLEAR MAGNETIC RESONANCE IMAGING ABNORMAL [None]
  - DEAFNESS [None]
  - VISUAL IMPAIRMENT [None]
  - IMPAIRED DRIVING ABILITY [None]
  - COGNITIVE DISORDER [None]
